FAERS Safety Report 14406135 (Version 3)
Quarter: 2020Q3

REPORT INFORMATION
  Report Type: Spontaneous
  Country: IN (occurrence: IN)
  Receive Date: 20180118
  Receipt Date: 20181029
  Transmission Date: 20201105
  Serious: Yes (Other)
  Sender: FDA-Public Use
  Company Number: IN-CIPLA LTD.-2018IN01273

PATIENT

DRUGS (10)
  1. ISONIAZID. [Suspect]
     Active Substance: ISONIAZID
     Indication: ABDOMINAL WALL WOUND
     Dosage: 150 MG, QD, FOR 4 MONTHS
     Route: 048
  2. AMIKACIN. [Suspect]
     Active Substance: AMIKACIN
     Indication: ABDOMINAL WALL WOUND
     Dosage: 500 MG, QD
     Route: 065
  3. CLARITHROMYCIN. [Concomitant]
     Active Substance: CLARITHROMYCIN
     Indication: MYCOBACTERIUM ABSCESSUS INFECTION
     Dosage: 500 MG, BID, 4 MONTHS
     Route: 048
  4. OFLOXACIN. [Suspect]
     Active Substance: OFLOXACIN
     Indication: ABDOMINAL WALL WOUND
     Dosage: 400 MG, BID, FOR 4 MONTHS
     Route: 048
  5. AMIKACIN. [Suspect]
     Active Substance: AMIKACIN
     Indication: MYCOBACTERIUM ABSCESSUS INFECTION
  6. RIFAMPICIN [Suspect]
     Active Substance: RIFAMPIN
     Indication: ABDOMINAL WALL WOUND
     Dosage: 250 MG, QD, FOR 4 MONTHS
     Route: 048
  7. LINEZOLID. [Suspect]
     Active Substance: LINEZOLID
     Indication: MYCOBACTERIUM ABSCESSUS INFECTION
     Dosage: UNK, FOR 3 WEEKS
     Route: 065
  8. CIPROFLOXACIN. [Suspect]
     Active Substance: CIPROFLOXACIN
     Indication: ABDOMINAL WALL WOUND
     Dosage: 500 MG, BID, FOR 21 DAYS
     Route: 065
  9. CLARITHROMYCIN. [Concomitant]
     Active Substance: CLARITHROMYCIN
     Indication: ABDOMINAL WALL WOUND
     Dosage: 500 MG, BID, FOR 21 DAYS
     Route: 065
  10. CLARITHROMYCIN. [Concomitant]
     Active Substance: CLARITHROMYCIN
     Dosage: 500 MG, BID, TABLET FORM
     Route: 048

REACTIONS (6)
  - Multiple-drug resistance [Unknown]
  - White blood cell count decreased [Unknown]
  - Drug ineffective [Unknown]
  - Platelet count decreased [Unknown]
  - International normalised ratio abnormal [Unknown]
  - Hypoacusis [Unknown]
